FAERS Safety Report 4627537-4 (Version None)
Quarter: 2005Q2

REPORT INFORMATION
  Report Type: 
  Country: None (occurrence: None)
  Receive Date: 20050405
  Receipt Date: 20050321
  Transmission Date: 20051028
  Serious: Yes (Hospitalization)
  Sender: FDA-Public Use
  Company Number: ABNDF-05-0196

PATIENT
  Age: 35 Year
  Sex: Female
  Weight: 64.4108 kg

DRUGS (12)
  1. ABRAXANE [Suspect]
     Indication: BREAST CANCER METASTATIC
     Dosage: 1 DOSE 440 MG (260 MG/M2, EVERY  3 WEEKS), INTRAVENOUS DRIP
     Route: 041
     Dates: start: 20050307, end: 20050307
  2. ABRAXANE [Suspect]
     Indication: METASTASES TO BONE
     Dosage: 1 DOSE 440 MG (260 MG/M2, EVERY  3 WEEKS), INTRAVENOUS DRIP
     Route: 041
     Dates: start: 20050307, end: 20050307
  3. ABRAXANE [Suspect]
     Indication: METASTASES TO LIVER
     Dosage: 1 DOSE 440 MG (260 MG/M2, EVERY  3 WEEKS), INTRAVENOUS DRIP
     Route: 041
     Dates: start: 20050307, end: 20050307
  4. MULTIVITAMIN [Concomitant]
  5. LORTAB [Concomitant]
  6. ADVIL [Concomitant]
  7. CALCIUM + VITAMIN D (CALCIUM WITH VITAMIN D) [Concomitant]
  8. VITAMIN B6 (PYRIDOXINE HYDROXHLORIDE0 [Concomitant]
  9. PRILOSEC [Concomitant]
  10. ALOXI (ANTIEMETICS AND ANTINAUSEANTS) [Concomitant]
  11. PROCRIT (ERYTHROOPOIETIN) [Concomitant]
  12. NEUPOGEN [Concomitant]

REACTIONS (6)
  - ABDOMINAL DISTENSION [None]
  - ARTHRALGIA [None]
  - ASTHENIA [None]
  - CONSTIPATION [None]
  - PAIN [None]
  - PYREXIA [None]
